FAERS Safety Report 5635434-0 (Version None)
Quarter: 2008Q1

REPORT INFORMATION
  Report Type: 
  Country: None (occurrence: None)
  Receive Date: 20080222
  Receipt Date: 20080211
  Transmission Date: 20080703
  Serious: Yes (Other)
  Sender: FDA-Public Use
  Company Number: GB-PFIZER INC-2008013518

PATIENT
  Age: 77 Year
  Sex: Female
  Weight: 69 kg

DRUGS (4)
  1. CHANTIX [Suspect]
     Route: 048
     Dates: start: 20080115, end: 20080125
  2. AMLODIPINE [Concomitant]
     Route: 048
  3. ATORVASTATIN CALCIUM [Concomitant]
     Route: 048
  4. BECLOMETHASONE DIPROPIONATE [Concomitant]
     Route: 055

REACTIONS (2)
  - ABDOMINAL DISTENSION [None]
  - NAUSEA [None]
